FAERS Safety Report 7363324-4 (Version None)
Quarter: 2011Q1

REPORT INFORMATION
  Report Type: 
  Country: None (occurrence: None)
  Receive Date: 20110321
  Receipt Date: 20110308
  Transmission Date: 20110831
  Serious: Yes (Hospitalization, Other)
  Sender: FDA-Public Use
  Company Number: US-JNJFOC-20081105470

PATIENT
  Sex: Female
  Weight: 40.4 kg

DRUGS (9)
  1. INFLIXIMAB [Suspect]
     Dosage: 5 MG/KG
     Route: 042
  2. INFLIXIMAB [Suspect]
     Route: 042
  3. INFLIXIMAB [Suspect]
     Dosage: TOTAL 4 DOSES
     Route: 042
  4. INFLIXIMAB [Suspect]
     Indication: INFLAMMATORY BOWEL DISEASE
     Route: 042
  5. INFLIXIMAB [Suspect]
     Indication: CROHN'S DISEASE
     Dosage: 5 MG/KG
     Route: 042
  6. INFLIXIMAB [Suspect]
     Dosage: TOTAL 4 DOSES
     Route: 042
  7. INFLIXIMAB [Suspect]
     Dosage: 5 MG/KG
     Route: 042
  8. INFLIXIMAB [Suspect]
     Indication: COLITIS ULCERATIVE
     Dosage: TOTAL 4 DOSES
     Route: 042
  9. INFLIXIMAB [Suspect]
     Route: 042

REACTIONS (4)
  - DEPRESSED MOOD [None]
  - CROHN'S DISEASE [None]
  - COLITIS ULCERATIVE [None]
  - LEUKOCYTOSIS [None]
